FAERS Safety Report 9708966 (Version 1)
Quarter: 2013Q4

REPORT INFORMATION
  Report Type: Spontaneous
  Country: IT (occurrence: None)
  Receive Date: 20131122
  Receipt Date: 20131122
  Transmission Date: 20140711
  Serious: Yes (Other)
  Sender: FDA-Public Use
  Company Number: 2017862

PATIENT
  Age: 57 Year
  Sex: Male
  Weight: 67 kg

DRUGS (6)
  1. OXALIPLATIN [Suspect]
     Indication: RECTAL CANCER
     Dosage: 121 MG MILLIGRAM(S) (CYCLICAL) INTRAVENOUS (NOT OTHERWISE SPECIFIED)
     Route: 042
     Dates: start: 20130220, end: 20130404
  2. ERBITUX [Suspect]
     Indication: RECTAL CANCER
     Dosage: 356 MG MILLIGRAM(S) (CYCLICAL) INTRAVENOUS (NOT OTHERWISE SPECIFIED)
     Route: 042
     Dates: start: 20130220, end: 20130404
  3. FLUOROURACIL [Suspect]
     Indication: RECTAL CANCER
     Dosage: 569.6 MG MILLIGRAM(S) (CYCLICAL) INTRAVENOUS BOLUS
     Route: 040
     Dates: start: 20130220, end: 20130404
  4. SOLDESAM [Concomitant]
  5. ONDANSETRONE HIKMA [Concomitant]
  6. RANIDIL [Concomitant]

REACTIONS (4)
  - Skin discolouration [None]
  - Diarrhoea [None]
  - Stomatitis [None]
  - Chest pain [None]
